FAERS Safety Report 7470279-0 (Version None)
Quarter: 2011Q2

REPORT INFORMATION
  Report Type: 
  Country: None (occurrence: None)
  Receive Date: 20110510
  Receipt Date: 20110509
  Transmission Date: 20111010
  Serious: Yes (Hospitalization)
  Sender: FDA-Public Use
  Company Number: JP-ABBOTT-11P-087-0720628-00

PATIENT
  Sex: Male
  Weight: 53.5 kg

DRUGS (4)
  1. HUMIRA [Suspect]
     Indication: CROHN'S DISEASE
     Route: 058
     Dates: start: 20110119, end: 20110119
  2. SULFASALAZINE [Concomitant]
     Indication: CROHN'S DISEASE
     Route: 048
  3. HUMIRA [Suspect]
     Dates: start: 20110202, end: 20110202
  4. HUMIRA [Suspect]
     Dates: start: 20110216, end: 20110216

REACTIONS (1)
  - INTESTINAL STENOSIS [None]
